FAERS Safety Report 7205593-7 (Version None)
Quarter: 2010Q4

REPORT INFORMATION
  Report Type: 
  Country: None (occurrence: None)
  Receive Date: 20101231
  Receipt Date: 20101222
  Transmission Date: 20110411
  Serious: Yes (Hospitalization)
  Sender: FDA-Public Use
  Company Number: ES-NOVOPROD-320676

PATIENT
  Age: 60 Year
  Sex: Male

DRUGS (2)
  1. INSULATARD FLEXPEN [Suspect]
     Indication: TYPE 2 DIABETES MELLITUS
     Dosage: 50 U, QD
     Route: 058
     Dates: start: 20100101, end: 20100228
  2. METFORMIN HCL [Concomitant]
     Indication: TYPE 2 DIABETES MELLITUS
     Dosage: 1700 MG, QD
     Route: 048
     Dates: start: 20100228

REACTIONS (2)
  - HYPOGLYCAEMIA [None]
  - LACTIC ACIDOSIS [None]
